FAERS Safety Report 25330680 (Version 2)
Quarter: 2025Q2

REPORT INFORMATION
  Report Type: Spontaneous
  Country: US (occurrence: US)
  Receive Date: 20250519
  Receipt Date: 20250618
  Transmission Date: 20250716
  Serious: Yes (Congenital Anomaly, Other)
  Sender: Haleon PLC
  Company Number: US-HALEON-2242509

PATIENT
  Age: 0 Year
  Sex: Male
  Weight: 5.897 kg

DRUGS (1)
  1. EXCEDRIN TENSION HEADACHE [Suspect]
     Active Substance: ACETAMINOPHEN\CAFFEINE
     Indication: Migraine
     Route: 064

REACTIONS (4)
  - Postnatal growth restriction [Not Recovered/Not Resolved]
  - Congenital hydronephrosis [Recovering/Resolving]
  - Foetal exposure during pregnancy [Unknown]
  - Pyelocaliectasis [Recovering/Resolving]

NARRATIVE: CASE EVENT DATE: 20241209
